FAERS Safety Report 8887744 (Version 1)
Quarter: 2012Q4

REPORT INFORMATION
  Report Type: 
  Country: US (occurrence: US)
  Receive Date: 20121106
  Receipt Date: 20121106
  Transmission Date: 20130627
  Serious: No
  Sender: FDA-Public Use
  Company Number: US-ASTRAZENECA-2012SE14307

PATIENT
  Age: 24525 Day
  Sex: Female
  Weight: 67.1 kg

DRUGS (5)
  1. ATENOLOL [Suspect]
     Indication: MIGRAINE
     Route: 048
  2. ATENOLOL [Suspect]
     Indication: MIGRAINE
     Route: 048
  3. NEXIUM [Suspect]
     Indication: GASTROOESOPHAGEAL REFLUX DISEASE
     Route: 048
     Dates: start: 20120221, end: 20120226
  4. LEVOTHYROXINE [Concomitant]
     Indication: THYROID DISORDER
     Route: 048
  5. PREDNISONE [Concomitant]
     Indication: BRONCHOSPASM
     Route: 048

REACTIONS (6)
  - Acne [Recovered/Resolved]
  - Ocular hyperaemia [Not Recovered/Not Resolved]
  - Swelling face [Not Recovered/Not Resolved]
  - Drug hypersensitivity [Unknown]
  - Off label use [Unknown]
  - Drug dose omission [Unknown]
